FAERS Safety Report 6003682-6 (Version None)
Quarter: 2008Q4

REPORT INFORMATION
  Report Type: 
  Country: None (occurrence: None)
  Receive Date: 20081212
  Receipt Date: 20081211
  Transmission Date: 20090506
  Serious: Yes (Hospitalization)
  Sender: FDA-Public Use
  Company Number: SP02182

PATIENT
  Age: 66 Year
  Sex: Male

DRUGS (5)
  1. VISICOL [Suspect]
     Indication: COLONOSCOPY
     Dosage: (50 GM), ORAL
     Route: 048
     Dates: start: 20080909, end: 20080909
  2. MITIGLINIDE CALCIUM HYDRATE [Concomitant]
  3. LAFUTIDINE [Concomitant]
  4. ATORVASTATIN CALCIUM [Concomitant]
  5. VOGLIBOSE [Concomitant]

REACTIONS (2)
  - MELAENA [None]
  - POST PROCEDURAL HAEMORRHAGE [None]
